FAERS Safety Report 24356087 (Version 1)
Quarter: 2024Q3

REPORT INFORMATION
  Report Type: Spontaneous
  Country: US (occurrence: US)
  Receive Date: 20240924
  Receipt Date: 20240924
  Transmission Date: 20241017
  Serious: No
  Sender: NOVARTIS
  Company Number: US-002147023-NVSC2024US189683

PATIENT

DRUGS (1)
  1. LEQVIO [Suspect]
     Active Substance: INCLISIRAN SODIUM
     Indication: Low density lipoprotein abnormal
     Dosage: 284 MG, Q3MO, (284 MG/1.5 ML), 1ST INJECTION THEN 3 MONTHS LATER
     Route: 030
     Dates: start: 202402

REACTIONS (2)
  - Low density lipoprotein increased [Unknown]
  - Incorrect route of product administration [Not Recovered/Not Resolved]
